FAERS Safety Report 5372158-1 (Version None)
Quarter: 2007Q2

REPORT INFORMATION
  Report Type: 
  Country: None (occurrence: None)
  Receive Date: 20070627
  Receipt Date: 20070625
  Transmission Date: 20071010
  Serious: Yes (Other)
  Sender: FDA-Public Use
  Company Number: JP-BAYER-200710454BYL

PATIENT
  Age: 62 Year
  Sex: Male

DRUGS (7)
  1. ADALAT [Suspect]
     Indication: ESSENTIAL HYPERTENSION
     Dosage: TOTAL DAILY DOSE: 20 MG  UNIT DOSE: 20 MG
     Route: 048
     Dates: start: 20060710
  2. NORVASC [Concomitant]
     Indication: ESSENTIAL HYPERTENSION
     Route: 048
     Dates: end: 20060709
  3. OLMETEC [Concomitant]
     Indication: ESSENTIAL HYPERTENSION
     Route: 048
  4. BUFFERIN [Concomitant]
     Route: 048
     Dates: start: 20060912
  5. AMARYL [Concomitant]
     Route: 048
  6. MELBIN [Concomitant]
     Route: 048
  7. TETUCUR S [Concomitant]
     Route: 048

REACTIONS (1)
  - TRANSIENT ISCHAEMIC ATTACK [None]
